FAERS Safety Report 8759417 (Version 3)
Quarter: 2012Q4

REPORT INFORMATION
  Report Type: 
  Country: US (occurrence: US)
  Receive Date: 20120829
  Receipt Date: 20121009
  Transmission Date: 20130627
  Serious: Yes (Death, Other)
  Sender: FDA-Public Use
  Company Number: US-BAYER-2012-089328

PATIENT
  Age: 79 Year
  Sex: Male

DRUGS (7)
  1. ACETYLSALICYLIC ACID({=100 MG) [Suspect]
     Indication: CORONARY ARTERY DISEASE
     Dosage: 81 mg, QD
     Route: 048
  2. ACETYLSALICYLIC ACID({=100 MG) [Suspect]
     Indication: ANTIPLATELET THERAPY
  3. CLOPIDOGREL [Suspect]
     Indication: CORONARY ARTERY DISEASE
     Dosage: 75 mg, QD
     Route: 048
  4. CLOPIDOGREL [Suspect]
     Indication: ANTIPLATELET THERAPY
  5. DABIGATRAN [Suspect]
     Indication: CORONARY ARTERY DISEASE
     Dosage: 150 mg, BID
     Route: 048
  6. DABIGATRAN [Suspect]
     Indication: ATRIAL FIBRILLATION
  7. SOTALOL [Suspect]

REACTIONS (7)
  - Rectal haemorrhage [Not Recovered/Not Resolved]
  - Epistaxis [Not Recovered/Not Resolved]
  - Hypotension [Not Recovered/Not Resolved]
  - Angina pectoris [Not Recovered/Not Resolved]
  - Exsanguination [Fatal]
  - Cardiac arrest [Fatal]
  - Bradycardia [Fatal]
